FAERS Safety Report 4317088-9 (Version None)
Quarter: 2004Q1

REPORT INFORMATION
  Report Type: 
  Country: None (occurrence: None)
  Receive Date: 20040312
  Receipt Date: 20040226
  Transmission Date: 20041129
  Serious: Yes (Death)
  Sender: FDA-Public Use
  Company Number: 2004IC000042

PATIENT
  Age: 1 Day
  Sex: 0

DRUGS (4)
  1. MESTINON [Suspect]
     Dosage: 600 MG; DAILY; TRANSPLACENTAL
     Route: 064
  2. MESTINON BROMIDE INJ [Suspect]
     Dosage: 180 MG; AT BEDTIME; TRANSPLACENTAL
     Route: 064
  3. PULMICORT [Concomitant]
  4. FORADIL [Concomitant]

REACTIONS (4)
  - ASTHMA [None]
  - COMPLICATIONS OF MATERNAL EXPOSURE TO THERAPEUTIC DRUGS [None]
  - DRUG EXPOSURE DURING PREGNANCY [None]
  - STILLBIRTH [None]
